FAERS Safety Report 17723422 (Version 3)
Quarter: 2020Q3

REPORT INFORMATION
  Report Type: Spontaneous
  Country: US (occurrence: US)
  Receive Date: 20200429
  Receipt Date: 20200807
  Transmission Date: 20201102
  Serious: Yes (Hospitalization, Other)
  Sender: FDA-Public Use
  Company Number: US-PFIZER INC-2020056482

PATIENT
  Age: 44 Year
  Sex: Female

DRUGS (3)
  1. PREGABALIN. [Suspect]
     Active Substance: PREGABALIN
     Dosage: 200 MG, 2X/DAY
  2. PREGABALIN. [Suspect]
     Active Substance: PREGABALIN
     Dosage: 225 MG, 2X/DAY
  3. PREGABALIN. [Suspect]
     Active Substance: PREGABALIN
     Indication: FIBROMYALGIA
     Dosage: 250 MG, 2X/DAY

REACTIONS (8)
  - Pain in extremity [Unknown]
  - Drug ineffective [Unknown]
  - Poor quality product administered [Unknown]
  - Pain [Unknown]
  - Chronic myeloid leukaemia [Unknown]
  - Neuropathy peripheral [Unknown]
  - Bone pain [Unknown]
  - Product taste abnormal [Unknown]
